FAERS Safety Report 4897551-2 (Version None)
Quarter: 2006Q1

REPORT INFORMATION
  Report Type: 
  Country: None (occurrence: None)
  Receive Date: 20060130
  Receipt Date: 20060130
  Transmission Date: 20060701
  Serious: No
  Sender: FDA-Public Use
  Company Number: None

PATIENT
  Age: 63 Year
  Sex: Female

DRUGS (1)
  1. HURRICAINE TOPICAL SPRAY [Suspect]
     Indication: ECHOCARDIOGRAM
     Dosage: SPRAY TO THROAT
     Dates: start: 20060112

REACTIONS (1)
  - METHAEMOGLOBINAEMIA [None]
